FAERS Safety Report 5630026-1 (Version None)
Quarter: 2008Q1

REPORT INFORMATION
  Report Type: 
  Country: None (occurrence: None)
  Receive Date: 20080214
  Receipt Date: 20080131
  Transmission Date: 20080703
  Serious: Yes (Other)
  Sender: FDA-Public Use
  Company Number: FABR-1000061

PATIENT
  Age: 35 Year
  Sex: Female
  Weight: 56 kg

DRUGS (4)
  1. FABRAZYME [Suspect]
     Indication: FABRY'S DISEASE
     Dosage: 1 MG/KG, Q2W, INTRAVENOUS
     Route: 042
     Dates: start: 20031218
  2. FABRAZYME [Suspect]
     Route: 042
  3. GABAPENTIN [Concomitant]
  4. ACETYLSALICYLIC ACID SRT [Concomitant]

REACTIONS (4)
  - HYPERSENSITIVITY [None]
  - OBSTRUCTIVE AIRWAYS DISORDER [None]
  - PRURITUS [None]
  - RASH GENERALISED [None]
